FAERS Safety Report 23475226 (Version 1)
Quarter: 2024Q1

REPORT INFORMATION
  Report Type: Report from Study
  Country: US (occurrence: US)
  Receive Date: 20240204
  Receipt Date: 20240204
  Transmission Date: 20240410
  Serious: No
  Sender: FDA-Public Use
  Company Number: US-EXELIXIS-CABO-22059033

PATIENT
  Sex: Male

DRUGS (2)
  1. CABOMETYX [Suspect]
     Active Substance: CABOZANTINIB S-MALATE
     Indication: Prostate cancer
     Dosage: 40 MG, QD
     Route: 048
     Dates: start: 20221026
  2. CABOMETYX [Suspect]
     Active Substance: CABOZANTINIB S-MALATE
     Dosage: 20 MG, QD
     Route: 048

REACTIONS (12)
  - Appetite disorder [Unknown]
  - Paraesthesia [Unknown]
  - Oral pain [Unknown]
  - Hair colour changes [Unknown]
  - Rash [Unknown]
  - Blood pressure increased [Unknown]
  - Muscle spasms [Unknown]
  - Dysphonia [Unknown]
  - Fatigue [Unknown]
  - Dyspnoea [Unknown]
  - Asthenia [Unknown]
  - Off label use [Unknown]
